FAERS Safety Report 5897565-X (Version None)
Quarter: 2008Q3

REPORT INFORMATION
  Report Type: 
  Country: None (occurrence: None)
  Receive Date: 20080829
  Receipt Date: 20080606
  Transmission Date: 20090109
  Serious: Yes (Other)
  Sender: FDA-Public Use
  Company Number: 025127

PATIENT
  Age: 33 Year
  Sex: Female

DRUGS (1)
  1. PLAN B [Suspect]
     Indication: CONTRACEPTION
     Dosage: ORAL
     Route: 048

REACTIONS (1)
  - ECTOPIC PREGNANCY [None]
